FAERS Safety Report 11870193 (Version 2)
Quarter: 2016Q1

REPORT INFORMATION
  Report Type: Spontaneous
  Country: US (occurrence: US)
  Receive Date: 20151228
  Receipt Date: 20160114
  Transmission Date: 20160526
  Serious: Yes (Other)
  Sender: FDA-Public Use
  Company Number: US-BAYER-2015-488674

PATIENT
  Age: 77 Year
  Sex: Female

DRUGS (1)
  1. CLIMARA [Suspect]
     Active Substance: ESTRADIOL
     Indication: HORMONE REPLACEMENT THERAPY
     Dosage: 0.1 MG, ONE PATCH WEEKLY
     Route: 062
     Dates: start: 2015, end: 2015

REACTIONS (5)
  - Suicidal ideation [None]
  - Product adhesion issue [None]
  - Drug ineffective [None]
  - Hot flush [None]
  - Product quality issue [None]

NARRATIVE: CASE EVENT DATE: 2015
